FAERS Safety Report 8138396-X (Version None)
Quarter: 2012Q1

REPORT INFORMATION
  Report Type: 
  Country: None (occurrence: None)
  Receive Date: 20120215
  Receipt Date: 20120201
  Transmission Date: 20120608
  Serious: Yes (Hospitalization)
  Sender: FDA-Public Use
  Company Number: JP-ROCHE-1036004

PATIENT
  Age: 62 Year
  Sex: Female
  Weight: 70 kg

DRUGS (4)
  1. XELODA [Suspect]
     Indication: RECTAL CANCER RECURRENT
     Dosage: DOSAGE IS UNCERTAIN.
     Route: 048
     Dates: start: 20110826, end: 20110101
  2. XELODA [Suspect]
     Route: 048
     Dates: start: 20120106
  3. AVASTIN [Suspect]
     Indication: RECTAL CANCER RECURRENT
     Route: 041
     Dates: start: 20110926, end: 20111128
  4. OXALIPLATIN [Concomitant]
     Indication: RECTAL CANCER RECURRENT
     Dosage: DOSAGE IS UNCERTAIN.
     Route: 041
     Dates: start: 20110826

REACTIONS (2)
  - POST PROCEDURAL HAEMORRHAGE [None]
  - ANAL HAEMORRHAGE [None]
